FAERS Safety Report 13024013 (Version 1)
Quarter: 2016Q4

REPORT INFORMATION
  Report Type: Spontaneous
  Country: US (occurrence: US)
  Receive Date: 20161213
  Receipt Date: 20161213
  Transmission Date: 20170207
  Serious: Yes (Other)
  Sender: FDA-Public Use
  Company Number: US-LPDUSPRD-20161104

PATIENT
  Age: 69 Year
  Sex: Female

DRUGS (2)
  1. METHYLENE BLUE INJECTION, USP (0301-10) 1% [Suspect]
     Active Substance: METHYLENE BLUE
     Dosage: DOSE NOT PROVIDED
     Route: 051
  2. INDIA INK [Suspect]
     Active Substance: CARBON DIOXIDE
     Route: 065

REACTIONS (3)
  - Wrong drug administered [Recovered/Resolved]
  - Administration site necrosis [Unknown]
  - Application site ulcer [Unknown]
